FAERS Safety Report 10207331 (Version 1)
Quarter: 2014Q2

REPORT INFORMATION
  Report Type: Spontaneous
  Country: US (occurrence: US)
  Receive Date: 20140530
  Receipt Date: 20140530
  Transmission Date: 20141212
  Serious: No
  Sender: FDA-Public Use
  Company Number: US-GLAXOSMITHKLINE-A1035158A

PATIENT
  Age: 70 Year
  Sex: Female

DRUGS (6)
  1. VENTOLIN [Suspect]
     Indication: ASTHMA
     Dosage: 2PUFF TWICE PER DAY
     Route: 055
     Dates: start: 20130724
  2. VITAMINS [Concomitant]
  3. PROZAC [Concomitant]
  4. SINGULAIR [Concomitant]
  5. SODIUM [Concomitant]
  6. B VITAMIN [Concomitant]

REACTIONS (3)
  - Asthma [Recovering/Resolving]
  - Wheezing [Recovering/Resolving]
  - Drug ineffective [Recovering/Resolving]
